FAERS Safety Report 15050349 (Version 11)
Quarter: 2019Q1

REPORT INFORMATION
  Report Type: Spontaneous
  Country: PT (occurrence: PT)
  Receive Date: 20180622
  Receipt Date: 20190111
  Transmission Date: 20190417
  Serious: Yes (Hospitalization, Other)
  Sender: FDA-Public Use
  Company Number: PT-PFIZER INC-2018252126

PATIENT
  Age: 26 Year
  Sex: Male

DRUGS (15)
  1. STANOZOLOL [Suspect]
     Active Substance: STANOZOLOL
     Indication: PERFORMANCE ENHANCING PRODUCT USE
     Dosage: 40 MG, 1X/DAY (6 WEEKS CYCLE BEFORE COMPETITION)
  2. TRENBOLONE [Suspect]
     Active Substance: TRENBOLONE
     Indication: PERFORMANCE ENHANCING PRODUCT USE
     Dosage: 100 MG, ALTERNATE DAY  (6 WEEKS CYCLE BEFORE COMPETITION)
  3. TESTOSTERONE ENANTHATE. [Suspect]
     Active Substance: TESTOSTERONE ENANTHATE
     Indication: PERFORMANCE ENHANCING PRODUCT USE
     Dosage: 250 MG, 1X/DAY  (6 WEEKS CYCLE BEFORE COMPETITION)
  4. LEVOTHYROXINE. [Suspect]
     Active Substance: LEVOTHYROXINE
     Indication: PERFORMANCE ENHANCING PRODUCT USE
     Dosage: 100 UG, 1X/DAY  (6 WEEKS CYCLE BEFORE COMPETITION)
  5. FLUOXYMESTERONE [Suspect]
     Active Substance: FLUOXYMESTERONE
     Indication: PERFORMANCE ENHANCING PRODUCT USE
     Dosage: 75 MG, 1X/DAY  (6 WEEKS CYCLE BEFORE COMPETITION)
  6. ALTIZIDE/SPIRONOLACTONE [Suspect]
     Active Substance: ALTHIAZIDE\SPIRONOLACTONE
     Dosage: ON THE DAY OF THE COMPETITION
  7. MESTEROLONE [Suspect]
     Active Substance: MESTEROLONE
     Indication: PERFORMANCE ENHANCING PRODUCT USE
     Dosage: 4-6 DF DAILY  (6 WEEKS CYCLE BEFORE COMPETITION)
  8. SUSTANON [Suspect]
     Active Substance: TESTOSTERONE
     Indication: PERFORMANCE ENHANCING PRODUCT USE
     Dosage: 250 MG, 2X/WEEK  (6 WEEKS CYCLE BEFORE COMPETITION)
  9. DROSTANOLONE PROPIONATE [Suspect]
     Active Substance: DROMOSTANOLONE PROPIONATE
     Indication: PERFORMANCE ENHANCING PRODUCT USE
     Dosage: 100 MG, ALTERNATE DAY  (6 WEEKS CYCLE BEFORE COMPETITION)
  10. CLENBUTEROL [Suspect]
     Active Substance: CLENBUTEROL
     Indication: PERFORMANCE ENHANCING PRODUCT USE
     Dosage: UNK, 3X/DAY  (6 WEEKS CYCLE BEFORE COMPETITION)
  11. BOLDENONE UNDECYLENATE [Suspect]
     Active Substance: BOLDENONE UNDECYLENATE
     Indication: PERFORMANCE ENHANCING PRODUCT USE
     Dosage: 1200 MG, WEEKLY  (6 WEEKS CYCLE BEFORE COMPETITION)
  12. ANASTROZOLE. [Suspect]
     Active Substance: ANASTROZOLE
     Indication: PERFORMANCE ENHANCING PRODUCT USE
     Dosage: 1 MG, 1X/DAY  (6 WEEKS CYCLE BEFORE COMPETITION)
     Route: 048
  13. LIOTHYRONINE [Suspect]
     Active Substance: LIOTHYRONINE
     Indication: PERFORMANCE ENHANCING PRODUCT USE
     Dosage: 25 UG, 2X/DAY (6 WEEKS CYCLE BEFORE COMPETITION)
  14. TESTOSTERONE CYPIONATE. [Suspect]
     Active Substance: TESTOSTERONE CYPIONATE
     Indication: PERFORMANCE ENHANCING PRODUCT USE
     Dosage: 500 MG, WEEKLY  (6 WEEKS CYCLE BEFORE COMPETITION)
  15. CABERGOLINE. [Suspect]
     Active Substance: CABERGOLINE
     Indication: PERFORMANCE ENHANCING PRODUCT USE
     Dosage: 0.25 MG, ALTERNATE DAY (6 WEEKS CYCLE BEFORE COMPETITION)

REACTIONS (4)
  - Diabetes mellitus [Unknown]
  - Product use in unapproved indication [Unknown]
  - Autoimmune thyroiditis [Unknown]
  - Secondary hypogonadism [Unknown]
